FAERS Safety Report 11185282 (Version 1)
Quarter: 2015Q2

REPORT INFORMATION
  Report Type: Spontaneous
  Country: US (occurrence: US)
  Receive Date: 20150612
  Receipt Date: 20150612
  Transmission Date: 20150821
  Serious: No
  Sender: FDA-Public Use
  Company Number: US-SA-2015SA059098

PATIENT
  Sex: Female

DRUGS (3)
  1. APIDRA [Suspect]
     Active Substance: INSULIN GLULISINE
     Indication: TYPE 2 DIABETES MELLITUS
     Dosage: TAKEN FROM: A YEAR OR TWO AGO?DOSE: AT 4U BASED ON SLIDING SCALE
     Route: 065
  2. TOUJEO [Suspect]
     Active Substance: INSULIN GLARGINE
     Indication: TYPE 2 DIABETES MELLITUS
     Dosage: DOSE:18 UNIT(S)
     Route: 065
     Dates: start: 20150429
  3. SOLOSTAR U300 [Concomitant]
     Dates: start: 20150429

REACTIONS (1)
  - Blood glucose increased [Not Recovered/Not Resolved]

NARRATIVE: CASE EVENT DATE: 201504
